FAERS Safety Report 24952439 (Version 2)
Quarter: 2025Q1

REPORT INFORMATION
  Report Type: Spontaneous
  Country: CA (occurrence: CA)
  Receive Date: 20250210
  Receipt Date: 20250213
  Transmission Date: 20250409
  Serious: Yes (Other)
  Sender: BIOMARIN
  Company Number: CA-BIOMARINAP-CA-2025-163420

PATIENT

DRUGS (1)
  1. NAGLAZYME [Suspect]
     Active Substance: GALSULFASE
     Indication: Mucopolysaccharidosis VI
     Dosage: 25 MILLIGRAM, QW
     Route: 042
     Dates: start: 20191001

REACTIONS (13)
  - Deafness bilateral [Unknown]
  - Urinary tract infection [Recovering/Resolving]
  - Abdominal pain [Recovering/Resolving]
  - Chromaturia [Recovering/Resolving]
  - Discomfort [Recovered/Resolved]
  - Pain [Recovered/Resolved]
  - Abdominal discomfort [Recovered/Resolved]
  - Nasopharyngitis [Recovering/Resolving]
  - Nasal congestion [Unknown]
  - Cough [Recovering/Resolving]
  - Dyspnoea [Unknown]
  - Rhinorrhoea [Recovering/Resolving]
  - Asthenia [Recovering/Resolving]

NARRATIVE: CASE EVENT DATE: 20250101
